FAERS Safety Report 17789930 (Version 1)
Quarter: 2020Q2

REPORT INFORMATION
  Report Type: Spontaneous
  Country: US (occurrence: US)
  Receive Date: 20200515
  Receipt Date: 20200515
  Transmission Date: 20200714
  Serious: Yes (Disabling, Other)
  Sender: FDA-Public Use
  Company Number: US-REGENERON PHARMACEUTICALS, INC.-2020-26595

PATIENT

DRUGS (3)
  1. EYLEA [Suspect]
     Active Substance: AFLIBERCEPT
     Indication: INTRAOCULAR PRESSURE INCREASED
  2. EYLEA [Suspect]
     Active Substance: AFLIBERCEPT
     Indication: EYE HAEMORRHAGE
     Dosage: BOTH EYES, EVERY 5 TO 6 WEEKS
     Route: 031
  3. EYLEA [Suspect]
     Active Substance: AFLIBERCEPT
     Indication: EYE OEDEMA
     Dosage: RIGHT EYE, EVERY 5 TO 6 WEEKS
     Route: 031
     Dates: start: 202002, end: 202002

REACTIONS (4)
  - Blindness unilateral [Unknown]
  - Off label use [Unknown]
  - Product dose omission [Unknown]
  - Drug ineffective [Unknown]

NARRATIVE: CASE EVENT DATE: 20200224
